FAERS Safety Report 6504547-3 (Version None)
Quarter: 2009Q4

REPORT INFORMATION
  Report Type: 
  Country: None (occurrence: None)
  Receive Date: 20091215
  Receipt Date: 20091204
  Transmission Date: 20100525
  Serious: Yes (Death, Hospitalization)
  Sender: FDA-Public Use
  Company Number: 2009AC000444

PATIENT
  Age: 83 Year
  Sex: Female

DRUGS (1)
  1. DIGOXIN [Suspect]
     Dosage: PO
     Route: 048

REACTIONS (12)
  - ANAEMIA [None]
  - CELLULITIS [None]
  - ECONOMIC PROBLEM [None]
  - HAEMATOMA [None]
  - HIATUS HERNIA [None]
  - IMPAIRED GASTRIC EMPTYING [None]
  - INFECTION [None]
  - MULTIPLE INJURIES [None]
  - OCCULT BLOOD POSITIVE [None]
  - OESOPHAGEAL SPASM [None]
  - OSTEOARTHRITIS [None]
  - URINARY TRACT INFECTION [None]
